FAERS Safety Report 24092173 (Version 1)
Quarter: 2024Q3

REPORT INFORMATION
  Report Type: Spontaneous
  Country: GB (occurrence: GB)
  Receive Date: 20240715
  Receipt Date: 20240715
  Transmission Date: 20241017
  Serious: Yes (Other)
  Sender: TEVA
  Company Number: None

PATIENT
  Sex: Female

DRUGS (1)
  1. VENLAFAXINE HYDROCHLORIDE [Suspect]
     Active Substance: VENLAFAXINE HYDROCHLORIDE
     Indication: Depression
     Dosage: 75MG ONCE PER DAY SLOW RELEASE
     Route: 065

REACTIONS (3)
  - Hypersomnia [Not Recovered/Not Resolved]
  - Insulin resistance [Not Recovered/Not Resolved]
  - Migraine [Not Recovered/Not Resolved]
